FAERS Safety Report 6030455-0 (Version None)
Quarter: 2009Q1

REPORT INFORMATION
  Report Type: 
  Country: None (occurrence: None)
  Receive Date: 20090106
  Receipt Date: 20090106
  Transmission Date: 20090719
  Serious: Yes (Death)
  Sender: FDA-Public Use
  Company Number: None

PATIENT
  Sex: Female
  Weight: 55.7924 kg

DRUGS (2)
  1. AVASTIN [Suspect]
     Indication: LUNG NEOPLASM MALIGNANT
     Dosage: 443 MG 21 DAYS IV
     Route: 042
     Dates: start: 20080627, end: 20081121
  2. AVASTIN [Suspect]

REACTIONS (2)
  - LUNG NEOPLASM MALIGNANT [None]
  - OVARIAN CANCER [None]
